FAERS Safety Report 5465539-9 (Version None)
Quarter: 2007Q3

REPORT INFORMATION
  Report Type: 
  Country: None (occurrence: None)
  Receive Date: 20070919
  Receipt Date: 20070906
  Transmission Date: 20080115
  Serious: Yes (Hospitalization)
  Sender: FDA-Public Use
  Company Number: 100#08#2007-03370

PATIENT
  Age: 19 Year
  Sex: Female

DRUGS (1)
  1. PROPRANOLOL [Suspect]
     Indication: MIGRAINE PROPHYLAXIS

REACTIONS (13)
  - ABDOMINAL PAIN [None]
  - BODY TEMPERATURE INCREASED [None]
  - CHOLECYSTITIS [None]
  - CHOLELITHIASIS [None]
  - CONTINUOUS HAEMODIAFILTRATION [None]
  - DRUG INTOLERANCE [None]
  - GALLBLADDER DISORDER [None]
  - HAEMODYNAMIC INSTABILITY [None]
  - HEADACHE [None]
  - HYPERHIDROSIS [None]
  - PHAEOCHROMOCYTOMA [None]
  - PULMONARY OEDEMA [None]
  - TACHYCARDIA [None]
